FAERS Safety Report 20069485 (Version 5)
Quarter: 2022Q3

REPORT INFORMATION
  Report Type: Spontaneous
  Country: GB (occurrence: GB)
  Receive Date: 20211115
  Receipt Date: 20220926
  Transmission Date: 20221027
  Serious: Yes (Hospitalization)
  Sender: FDA-Public Use
  Company Number: GB-MYLANLABS-2021M1083323

PATIENT
  Age: 54 Year
  Sex: Male

DRUGS (4)
  1. CLOZARIL [Suspect]
     Active Substance: CLOZAPINE
     Indication: Schizophrenia
     Dosage: UNK
     Route: 048
     Dates: start: 20090819, end: 20211011
  2. CLOZARIL [Suspect]
     Active Substance: CLOZAPINE
     Dosage: UNK
     Route: 048
     Dates: start: 20191015, end: 20211216
  3. CLOZARIL [Suspect]
     Active Substance: CLOZAPINE
     Dosage: UNK
     Route: 048
     Dates: start: 20220728
  4. CLOZARIL [Suspect]
     Active Substance: CLOZAPINE
     Dosage: 150 MILLIGRAM, BID
     Route: 048

REACTIONS (5)
  - General physical health deterioration [Unknown]
  - White blood cell count decreased [Recovered/Resolved]
  - Neutrophil count decreased [Recovered/Resolved]
  - Eosinophil count decreased [Recovered/Resolved]
  - Drug level decreased [Unknown]

NARRATIVE: CASE EVENT DATE: 20211213
